FAERS Safety Report 25267307 (Version 1)
Quarter: 2025Q2

REPORT INFORMATION
  Report Type: Spontaneous
  Country: US (occurrence: US)
  Receive Date: 20250505
  Receipt Date: 20250505
  Transmission Date: 20250716
  Serious: No
  Sender: AMGEN
  Company Number: US-AMGEN-USASP2025084656

PATIENT
  Age: 42 Year
  Sex: Male

DRUGS (9)
  1. AIMOVIG [Suspect]
     Active Substance: ERENUMAB-AOOE
     Indication: Migraine prophylaxis
     Dosage: 140 MILLIGRAM, QMO
     Route: 065
     Dates: start: 2024, end: 2024
  2. AIMOVIG [Suspect]
     Active Substance: ERENUMAB-AOOE
     Dosage: 140 MILLIGRAM, QMO
     Route: 065
     Dates: start: 20250428
  3. WELLBUTRIN [Concomitant]
     Active Substance: BUPROPION HYDROCHLORIDE
     Dosage: UNK UNK, BID
  4. BUSPIRONE [Concomitant]
     Active Substance: BUSPIRONE HYDROCHLORIDE
     Dosage: 10 MILLIGRAM, TID
  5. B12 [Concomitant]
     Dosage: 1000 MILLIGRAM, BID
  6. DIAZEPAM [Concomitant]
     Active Substance: DIAZEPAM
  7. PRAZOSIN [Concomitant]
     Active Substance: PRAZOSIN
     Indication: Post-traumatic stress disorder
  8. TIZANIDINE [Concomitant]
     Active Substance: TIZANIDINE
  9. AMBIEN [Concomitant]
     Active Substance: ZOLPIDEM TARTRATE

REACTIONS (9)
  - Abdominal pain [Not Recovered/Not Resolved]
  - Injection site bruising [Unknown]
  - Food poisoning [Not Recovered/Not Resolved]
  - Vomiting [Not Recovered/Not Resolved]
  - Pyrexia [Not Recovered/Not Resolved]
  - Muscle spasms [Unknown]
  - Injection site pain [Unknown]
  - Constipation [Recovered/Resolved]
  - Therapy interrupted [Unknown]

NARRATIVE: CASE EVENT DATE: 20240101
